FAERS Safety Report 4345166-7 (Version None)
Quarter: 2004Q2

REPORT INFORMATION
  Report Type: 
  Country: None (occurrence: None)
  Receive Date: 20040420
  Receipt Date: 20040406
  Transmission Date: 20050107
  Serious: Yes (Hospitalization)
  Sender: FDA-Public Use
  Company Number: 2004-BP-02459NB

PATIENT
  Age: 85 Year
  Sex: Female

DRUGS (3)
  1. MOBIC [Suspect]
     Indication: BACK PAIN
     Dosage: NR (NR)
     Dates: start: 20040105
  2. ASPIRIN [Suspect]
     Dates: start: 20040105
  3. VOLTAREN [Suspect]
     Dates: start: 20040106

REACTIONS (3)
  - GASTRIC ULCER [None]
  - GASTROINTESTINAL CANDIDIASIS [None]
  - OEDEMA PERIPHERAL [None]
